FAERS Safety Report 7227412-5 (Version None)
Quarter: 2011Q1

REPORT INFORMATION
  Report Type: 
  Country: None (occurrence: None)
  Receive Date: 20110111
  Receipt Date: 20110111
  Transmission Date: 20110831
  Serious: No
  Sender: FDA-Public Use
  Company Number: None

PATIENT
  Age: 48 Year
  Sex: Female
  Weight: 57.6068 kg

DRUGS (3)
  1. PROZAC [Suspect]
     Indication: INSOMNIA
     Dosage: 20 MG 1 X DAILY PO
     Route: 048
     Dates: start: 20101201, end: 20110105
  2. PROZAC [Suspect]
     Indication: HEADACHE
     Dosage: 20 MG 1 X DAILY PO
     Route: 048
     Dates: start: 20101201, end: 20110105
  3. PROZAC [Suspect]
     Indication: DEPRESSION
     Dosage: 20 MG 1 X DAILY PO
     Route: 048
     Dates: start: 20101201, end: 20110105

REACTIONS (7)
  - ANGER [None]
  - DYSKINESIA [None]
  - ABNORMAL BEHAVIOUR [None]
  - AGGRESSION [None]
  - SCREAMING [None]
  - HEADACHE [None]
  - MUSCLE TWITCHING [None]
